FAERS Safety Report 8937069 (Version 1)
Quarter: 2012Q4

REPORT INFORMATION
  Report Type: 
  Country: US (occurrence: US)
  Receive Date: 20121129
  Receipt Date: 20121129
  Transmission Date: 20130627
  Serious: Yes (Hospitalization)
  Sender: FDA-Public Use
  Company Number: US-AMGEN-USASP2012076437

PATIENT
  Sex: Male

DRUGS (5)
  1. ENBREL [Suspect]
     Indication: PSORIATIC ARTHROPATHY
     Dosage: 50 mg, qwk
     Dates: start: 20061126
  2. ENBREL [Suspect]
     Indication: PSORIASIS
  3. REMICADE [Concomitant]
     Dosage: UNK
     Dates: start: 200307, end: 200607
  4. HUMIRA [Concomitant]
     Dosage: UNK
     Dates: start: 200701, end: 200801
  5. STELARA [Concomitant]
     Dosage: UNK
     Dates: start: 201001, end: 201011

REACTIONS (9)
  - Abdominal pain [Recovered/Resolved]
  - Road traffic accident [Recovered/Resolved]
  - Injury [Recovered/Resolved]
  - Headache [Not Recovered/Not Resolved]
  - Eye pain [Not Recovered/Not Resolved]
  - Pancreatic cyst [Not Recovered/Not Resolved]
  - Infusion related reaction [Recovered/Resolved]
  - Serum sickness [Recovered/Resolved]
  - Postoperative wound infection [Recovered/Resolved]
